FAERS Safety Report 12470444 (Version 2)
Quarter: 2016Q3

REPORT INFORMATION
  Report Type: Spontaneous
  Country: US (occurrence: US)
  Receive Date: 20160616
  Receipt Date: 20160805
  Transmission Date: 20161109
  Serious: Yes (Other)
  Sender: FDA-Public Use
  Company Number: US-ASTRAZENECA-2016SE60574

PATIENT
  Age: 24724 Day
  Sex: Female
  Weight: 83.5 kg

DRUGS (11)
  1. MELOXICAM. [Concomitant]
     Active Substance: MELOXICAM
     Indication: ARTHRITIS
     Route: 048
     Dates: start: 2001
  2. BABY ASPIRIN [Concomitant]
     Active Substance: ASPIRIN
     Indication: NERVE INJURY
     Route: 048
     Dates: start: 2004
  3. BYDUREON [Suspect]
     Active Substance: EXENATIDE
     Indication: TYPE 2 DIABETES MELLITUS
     Route: 058
     Dates: start: 20160518
  4. VITAMIN B12 [Concomitant]
     Active Substance: CYANOCOBALAMIN
     Indication: VITAMIN B12 DECREASED
     Dosage: 1000 MG ONCE DAILY
     Route: 048
  5. AVALIDE [Concomitant]
     Active Substance: HYDROCHLOROTHIAZIDE\IRBESARTAN
     Indication: BLOOD PRESSURE ABNORMAL
     Dosage: 150-12.5 MG ONCE DAILY
     Route: 048
     Dates: start: 1996
  6. GARLIC TABLET [Concomitant]
     Indication: BLOOD CHOLESTEROL ABNORMAL
     Dosage: 1000 MG ONCE DAILY
     Route: 048
     Dates: start: 1996
  7. METFORMIN [Concomitant]
     Active Substance: METFORMIN HYDROCHLORIDE
     Indication: TYPE 2 DIABETES MELLITUS
     Dosage: 500 MG TWICE A DAY
     Route: 048
  8. CRANBERRY TABLETS [Concomitant]
     Indication: URINARY TRACT INFECTION
     Route: 048
     Dates: start: 2011
  9. OCCUVITE [Concomitant]
     Indication: EYE DISORDER
     Dosage: DAILY
     Route: 048
     Dates: start: 2014
  10. MULTIVITAMIN [Concomitant]
     Active Substance: VITAMINS
     Dosage: DAILY
     Route: 048
  11. PAXIL [Concomitant]
     Active Substance: PAROXETINE HYDROCHLORIDE
     Indication: ANXIETY
     Route: 048
     Dates: start: 2003

REACTIONS (6)
  - Injection site extravasation [Unknown]
  - Circumstance or information capable of leading to medication error [Unknown]
  - Injection site swelling [Recovered/Resolved]
  - Injection site erythema [Recovered/Resolved]
  - Injection site pain [Recovered/Resolved]
  - Injection site pruritus [Unknown]

NARRATIVE: CASE EVENT DATE: 20160518
